FAERS Safety Report 5376183-6 (Version None)
Quarter: 2007Q3

REPORT INFORMATION
  Report Type: 
  Country: None (occurrence: None)
  Receive Date: 20070702
  Receipt Date: 20070621
  Transmission Date: 20080115
  Serious: Yes (Death)
  Sender: FDA-Public Use
  Company Number: IT-SANOFI-SYNTHELABO-A06200700294

PATIENT
  Age: 77 Year
  Sex: Male

DRUGS (5)
  1. ASPIRIN [Concomitant]
     Indication: CORONARY ANGIOPLASTY
     Route: 065
  2. CLOPIDOGREL [Suspect]
     Indication: CORONARY ANGIOPLASTY
     Route: 048
  3. CLOPIDOGREL [Suspect]
     Indication: STENT PLACEMENT
     Route: 048
  4. CLOPIDOGREL [Suspect]
     Route: 048
  5. CLOPIDOGREL [Suspect]
     Route: 048

REACTIONS (2)
  - DRUG INEFFECTIVE [None]
  - THROMBOSIS IN DEVICE [None]
